FAERS Safety Report 22324907 (Version 2)
Quarter: 2023Q2

REPORT INFORMATION
  Report Type: Spontaneous
  Country: JP (occurrence: JP)
  Receive Date: 20230516
  Receipt Date: 20230529
  Transmission Date: 20230722
  Serious: Yes (Hospitalization, Other)
  Sender: FDA-Public Use
  Company Number: JP-TEVA-2023-JP-2887948

PATIENT
  Age: 50 Year
  Sex: Female

DRUGS (5)
  1. PIOGLITAZONE [Suspect]
     Active Substance: PIOGLITAZONE
     Indication: Type 2 diabetes mellitus
     Dosage: 7.5 MILLIGRAM DAILY; ONCE A DAY
     Route: 065
  2. DULAGLUTIDE [Suspect]
     Active Substance: DULAGLUTIDE
     Indication: Type 2 diabetes mellitus
     Dosage: 0.75MG ONCE A WEEK
     Route: 065
  3. RISPERIDONE [Suspect]
     Active Substance: RISPERIDONE
     Indication: Schizophrenia
     Dosage: 4 MILLIGRAM DAILY; ONCE A DAY
     Route: 065
  4. LUSEOGLIFLOZIN [Concomitant]
     Active Substance: LUSEOGLIFLOZIN
     Indication: Type 2 diabetes mellitus
     Dosage: 2.5 MILLIGRAM DAILY; ONCE A DAY
     Route: 065
  5. METFORMIN [Concomitant]
     Active Substance: METFORMIN HYDROCHLORIDE
     Indication: Type 2 diabetes mellitus
     Dosage: 1500 MILLIGRAM DAILY; 500 MG THREE TIMES A DAY
     Route: 065

REACTIONS (2)
  - Hyperphagia [Recovered/Resolved]
  - Drug ineffective [Unknown]
